FAERS Safety Report 6687928-7 (Version None)
Quarter: 2010Q2

REPORT INFORMATION
  Report Type: 
  Country: None (occurrence: None)
  Receive Date: 20100420
  Receipt Date: 20100409
  Transmission Date: 20101027
  Serious: Yes (Other)
  Sender: FDA-Public Use
  Company Number: US-JNJFOC-20100402594

PATIENT
  Sex: Female
  Weight: 39.46 kg

DRUGS (3)
  1. RISPERDAL [Suspect]
     Indication: AGGRESSION
     Route: 048
  2. RISPERDAL [Suspect]
     Indication: AUTISM
     Route: 048
  3. TENEX [Concomitant]
     Indication: TOURETTE'S DISORDER
     Route: 065

REACTIONS (4)
  - AGGRESSION [None]
  - EPISTAXIS [None]
  - HAEMATOCHEZIA [None]
  - SELF INJURIOUS BEHAVIOUR [None]
